FAERS Safety Report 6209371-7 (Version None)
Quarter: 2009Q2

REPORT INFORMATION
  Report Type: 
  Country: None (occurrence: None)
  Receive Date: 20090529
  Receipt Date: 20090519
  Transmission Date: 20091009
  Serious: Yes (Life-Threatening, Hospitalization, Other)
  Sender: FDA-Public Use
  Company Number: US-JNJFOC-20090400846

PATIENT
  Sex: Female
  Weight: 68.49 kg

DRUGS (3)
  1. REMICADE [Suspect]
     Indication: RHEUMATOID ARTHRITIS
     Dosage: 400-700 MG
     Route: 042
  2. INSULIN [Concomitant]
  3. VITAMIN [Concomitant]

REACTIONS (5)
  - BREAST CANCER [None]
  - HIP FRACTURE [None]
  - PULMONARY THROMBOSIS [None]
  - RHEUMATOID ARTHRITIS [None]
  - THROMBOSIS [None]
